FAERS Safety Report 6233107-7 (Version None)
Quarter: 2009Q2

REPORT INFORMATION
  Report Type: 
  Country: None (occurrence: None)
  Receive Date: 20090617
  Receipt Date: 20090526
  Transmission Date: 20091009
  Serious: Yes (Hospitalization)
  Sender: FDA-Public Use
  Company Number: TR-ELI_LILLY_AND_COMPANY-TR200906003373

PATIENT
  Age: 79 Year
  Sex: Male

DRUGS (1)
  1. HUMALOG [Suspect]
     Indication: DIABETES MELLITUS
     Dosage: 27 IU, DAILY (1/D)
     Route: 058
     Dates: start: 20070101

REACTIONS (2)
  - BLOOD GLUCOSE ABNORMAL [None]
  - SKIN ULCER [None]
